FAERS Safety Report 12200451 (Version 2)
Quarter: 2016Q2

REPORT INFORMATION
  Report Type: Spontaneous
  Country: US (occurrence: US)
  Receive Date: 20160322
  Receipt Date: 20160413
  Transmission Date: 20160815
  Serious: Yes (Other)
  Sender: FDA-Public Use
  Company Number: US-ASTRAZENECA-2016SE19031

PATIENT
  Sex: Female

DRUGS (1)
  1. BRILINTA [Suspect]
     Active Substance: TICAGRELOR
     Indication: ACUTE CORONARY SYNDROME
     Route: 048

REACTIONS (8)
  - Drug dose omission [Unknown]
  - Spinal fracture [Unknown]
  - Fall [Unknown]
  - Contusion [Unknown]
  - Sinus headache [Unknown]
  - Pain [Unknown]
  - Dyspnoea [Unknown]
  - Visual acuity reduced [Unknown]
